FAERS Safety Report 7270860-8 (Version None)
Quarter: 2011Q1

REPORT INFORMATION
  Report Type: 
  Country: None (occurrence: None)
  Receive Date: 20110202
  Receipt Date: 20110124
  Transmission Date: 20110831
  Serious: Yes (Other)
  Sender: FDA-Public Use
  Company Number: JP-ASTRAZENECA-2010SE59595

PATIENT
  Age: 68 Year
  Sex: Female

DRUGS (7)
  1. FOSAMAC [Concomitant]
     Indication: INTERSTITIAL LUNG DISEASE
     Route: 048
     Dates: start: 20101019
  2. METHYCOBAL [Concomitant]
     Indication: STOMATITIS
     Route: 048
     Dates: start: 20100525
  3. SYMBICORT [Suspect]
     Indication: BRONCHITIS CHRONIC
     Dosage: 60, 2 DF BID
     Route: 055
     Dates: start: 20101116
  4. SYMBICORT [Suspect]
     Dosage: 60, 1 DF BID
     Route: 055
     Dates: start: 20101209
  5. PREDNISOLONE [Suspect]
     Indication: INTERSTITIAL LUNG DISEASE
     Route: 048
     Dates: start: 20100228
  6. CLARITH [Concomitant]
     Indication: BRONCHITIS CHRONIC
     Route: 048
     Dates: start: 20100921
  7. LANSOPRAZOLE-OD [Concomitant]
     Indication: INTERSTITIAL LUNG DISEASE
     Route: 048
     Dates: start: 20100928

REACTIONS (1)
  - PNEUMONIA [None]
